FAERS Safety Report 5466204-4 (Version None)
Quarter: 2007Q3

REPORT INFORMATION
  Report Type: 
  Country: None (occurrence: None)
  Receive Date: 20070924
  Receipt Date: 20070912
  Transmission Date: 20080115
  Serious: Yes (Hospitalization)
  Sender: FDA-Public Use
  Company Number: US-PFIZER INC-2007076225

PATIENT
  Sex: Female

DRUGS (4)
  1. ZITHROMAX [Suspect]
  2. ANTIHYPERTENSIVES [Concomitant]
  3. RIFAMPIN [Concomitant]
  4. ETHAMBUTOL [Concomitant]

REACTIONS (1)
  - HYPERTENSION [None]
